FAERS Safety Report 4551782-X (Version None)
Quarter: 2005Q1

REPORT INFORMATION
  Report Type: 
  Country: None (occurrence: None)
  Receive Date: 20050113
  Receipt Date: 20050104
  Transmission Date: 20050727
  Serious: Yes (Death, Hospitalization)
  Sender: FDA-Public Use
  Company Number: GB-GLAXOSMITHKLINE-B0363364A

PATIENT
  Age: 82 Year

DRUGS (2)
  1. CEFUROXIME SODIUM [Suspect]
     Indication: PERITONITIS
     Dosage: 750MG THREE TIMES PER DAY
     Route: 042
     Dates: start: 20030330, end: 20030428
  2. BENDROFLUAZIDE [Concomitant]
     Indication: HYPERTENSION
     Dosage: 2.5MG PER DAY
     Route: 048

REACTIONS (3)
  - CLOSTRIDIUM COLITIS [None]
  - COLITIS [None]
  - PERITONITIS [None]
